FAERS Safety Report 4694155-1 (Version None)
Quarter: 2005Q2

REPORT INFORMATION
  Report Type: 
  Country: None (occurrence: None)
  Receive Date: 20050617
  Receipt Date: 20050617
  Transmission Date: 20051028
  Serious: Yes (Hospitalization)
  Sender: FDA-Public Use
  Company Number: None

PATIENT
  Age: 72 Year
  Sex: Male
  Weight: 67.586 kg

DRUGS (2)
  1. AMIODARONE [Suspect]
     Indication: ATRIAL FIBRILLATION
     Dosage: 800 MG DAILY ORAL
     Route: 048
     Dates: start: 20050101, end: 20050507
  2. AMIODARONE [Suspect]
     Indication: ATRIAL FIBRILLATION
     Dosage: 200 MG DAILY ORAL
     Route: 048
     Dates: start: 20050507, end: 20050607

REACTIONS (2)
  - HEPATIC ENZYME INCREASED [None]
  - MALAISE [None]
